FAERS Safety Report 8056933-0 (Version None)
Quarter: 2012Q1

REPORT INFORMATION
  Report Type: 
  Country: None (occurrence: None)
  Receive Date: 20120119
  Receipt Date: 20120107
  Transmission Date: 20120608
  Serious: Yes (Life-Threatening, Hospitalization, Other)
  Sender: FDA-Public Use
  Company Number: DE-ACTELION-A-CH2011-58023

PATIENT
  Sex: Female
  Weight: 70 kg

DRUGS (5)
  1. TRACLEER [Suspect]
     Indication: SYSTEMIC SCLEROSIS
     Dosage: 125 MG, BID
     Route: 048
     Dates: start: 20110915
  2. TRACLEER [Suspect]
     Dosage: 62.5 MG, BID
     Route: 048
     Dates: start: 20110804, end: 20110914
  3. ASPIRIN [Concomitant]
  4. PANTOPRAZOLE [Concomitant]
  5. OSSOFORTIN [Concomitant]

REACTIONS (6)
  - NON-HODGKIN'S LYMPHOMA [None]
  - HEPATIC STEATOSIS [None]
  - BLOOD ALKALINE PHOSPHATASE INCREASED [None]
  - ALANINE AMINOTRANSFERASE INCREASED [None]
  - LYMPHADENECTOMY [None]
  - ASPARTATE AMINOTRANSFERASE INCREASED [None]
